FAERS Safety Report 20919034 (Version 2)
Quarter: 2022Q3

REPORT INFORMATION
  Report Type: Spontaneous
  Country: US (occurrence: US)
  Receive Date: 20220606
  Receipt Date: 20220701
  Transmission Date: 20221026
  Serious: Yes (Other)
  Sender: FDA-Public Use
  Company Number: US-ELI_LILLY_AND_COMPANY-US202205012448

PATIENT
  Sex: Male
  Weight: 63.039 kg

DRUGS (1)
  1. TALTZ [Suspect]
     Active Substance: IXEKIZUMAB
     Indication: Axial spondyloarthritis
     Dosage: 80 MG, SINGLE
     Route: 058
     Dates: start: 20220513, end: 20220513

REACTIONS (2)
  - Anaphylactic reaction [Recovered/Resolved]
  - Inappropriate schedule of product administration [Unknown]
